FAERS Safety Report 5733309-X (Version None)
Quarter: 2008Q2

REPORT INFORMATION
  Report Type: 
  Country: None (occurrence: None)
  Receive Date: 20080509
  Receipt Date: 20080501
  Transmission Date: 20081010
  Serious: Yes (Disabling)
  Sender: FDA-Public Use
  Company Number: GB-ABBOTT-07P-167-0425791-00

PATIENT
  Sex: Female
  Weight: 54.8 kg

DRUGS (3)
  1. HUMIRA [Suspect]
     Indication: CROHN'S DISEASE
     Route: 058
     Dates: start: 20070801, end: 20080101
  2. HUMIRA [Suspect]
     Dates: start: 20070801, end: 20080101
  3. CALCIUM /VITAMIN D3 [Concomitant]
     Indication: MINERAL SUPPLEMENTATION
     Route: 048

REACTIONS (14)
  - ACNE [None]
  - ALOPECIA [None]
  - ANXIETY [None]
  - ARTHRALGIA [None]
  - BREAST PAIN [None]
  - BREAST SWELLING [None]
  - DEPRESSION [None]
  - HORMONE LEVEL ABNORMAL [None]
  - INFLUENZA [None]
  - MENORRHAGIA [None]
  - MOOD ALTERED [None]
  - PREMENSTRUAL SYNDROME [None]
  - RASH MACULAR [None]
  - UNEVALUABLE EVENT [None]
